FAERS Safety Report 14989130 (Version 1)
Quarter: 2018Q2

REPORT INFORMATION
  Report Type: Spontaneous
  Country: JP (occurrence: JP)
  Receive Date: 20180608
  Receipt Date: 20180608
  Transmission Date: 20180711
  Serious: Yes (Hospitalization, Disabling, Other)
  Sender: FDA-Public Use
  Company Number: JP-JNJFOC-20180500579

PATIENT
  Age: 76 Year
  Sex: Female
  Weight: 42.4 kg

DRUGS (13)
  1. ORGAN LYSATE, STANDARDIZED [Concomitant]
     Route: 048
     Dates: start: 20131119
  2. CABASER [Concomitant]
     Active Substance: CABERGOLINE
     Route: 048
     Dates: start: 20131205
  3. MAGMITT [Concomitant]
     Active Substance: MAGNESIUM OXIDE
     Route: 048
     Dates: start: 20151021
  4. DOMPERIDONE [Concomitant]
     Active Substance: DOMPERIDONE
     Route: 048
     Dates: start: 20131205
  5. CYMBALTA [Concomitant]
     Active Substance: DULOXETINE HYDROCHLORIDE
     Route: 048
     Dates: start: 20140114
  6. QUETIAPINE. [Concomitant]
     Active Substance: QUETIAPINE
     Route: 048
     Dates: start: 20160325
  7. XARELTO [Suspect]
     Active Substance: RIVAROXABAN
     Indication: DEEP VEIN THROMBOSIS
     Route: 048
     Dates: start: 20180329, end: 20180418
  8. XARELTO [Suspect]
     Active Substance: RIVAROXABAN
     Indication: DEEP VEIN THROMBOSIS
     Route: 048
     Dates: start: 20180419, end: 20180423
  9. EXCEGRAN [Concomitant]
     Active Substance: ZONISAMIDE
     Route: 048
     Dates: start: 20131205
  10. MENESIT [Concomitant]
     Active Substance: CARBIDOPA\LEVODOPA
     Route: 048
     Dates: start: 20140114
  11. MEMANTINE HYDROCHLORIDE. [Concomitant]
     Active Substance: MEMANTINE HYDROCHLORIDE
     Route: 048
     Dates: start: 20161207
  12. STALEVO [Concomitant]
     Active Substance: CARBIDOPA\ENTACAPONE\LEVODOPA
     Route: 048
     Dates: start: 20150617
  13. LANDSEN [Concomitant]
     Active Substance: CLONAZEPAM
     Route: 048
     Dates: start: 20131205

REACTIONS (6)
  - Quadriplegia [Unknown]
  - Cerebral ventricular rupture [Recovered/Resolved with Sequelae]
  - Depressed level of consciousness [Unknown]
  - Thalamus haemorrhage [Recovered/Resolved with Sequelae]
  - Hemiplegia [Unknown]
  - Dysphagia [Unknown]

NARRATIVE: CASE EVENT DATE: 20180423
